FAERS Safety Report 5065374-X (Version None)
Quarter: 2006Q3

REPORT INFORMATION
  Report Type: 
  Country: None (occurrence: None)
  Receive Date: 20060707
  Receipt Date: 20060227
  Transmission Date: 20061208
  Serious: Yes (Other)
  Sender: FDA-Public Use
  Company Number: SUS1-2005-00955

PATIENT
  Age: 22 Year
  Sex: Male

DRUGS (4)
  1. PENTASA [Suspect]
     Indication: COLITIS ULCERATIVE
     Dosage: 2250 DAILY, ORAL
     Route: 048
     Dates: start: 20050602, end: 20050614
  2. FESIN (SACCHARATED IRON OXIDE) [Suspect]
     Indication: ANAEMIA
     Dosage: INTRAVENOUS
     Route: 042
     Dates: start: 20050603, end: 20050617
  3. CEFAMEZOL (CEFAZOLIN SODIUM) [Suspect]
     Indication: HAEMATOCHEZIA
     Dosage: 2 G DAILY, INTRAVENOUS
     Route: 042
     Dates: start: 20050602, end: 20050607
  4. PREDNISOLONE [Concomitant]

REACTIONS (1)
  - ALANINE AMINOTRANSFERASE INCREASED [None]
